FAERS Safety Report 5777690-4 (Version None)
Quarter: 2008Q2

REPORT INFORMATION
  Report Type: 
  Country: None (occurrence: None)
  Receive Date: 20080618
  Receipt Date: 20080609
  Transmission Date: 20081010
  Serious: Yes (Hospitalization)
  Sender: FDA-Public Use
  Company Number: FI-PFIZER INC-2008048274

PATIENT
  Sex: Male

DRUGS (3)
  1. ZYVOXID TABLET [Suspect]
     Indication: SKIN INFECTION
     Route: 048
  2. ZYVOXID TABLET [Suspect]
     Indication: SOFT TISSUE INFECTION
  3. TAVANIC [Concomitant]

REACTIONS (4)
  - ABDOMINAL PAIN [None]
  - HYPOTENSION [None]
  - NAUSEA [None]
  - OEDEMA PERIPHERAL [None]
